FAERS Safety Report 12282190 (Version 1)
Quarter: 2016Q2

REPORT INFORMATION
  Report Type: Spontaneous
  Country: GB (occurrence: GB)
  Receive Date: 20160419
  Receipt Date: 20160419
  Transmission Date: 20160815
  Serious: Yes (Other)
  Sender: FDA-Public Use
  Company Number: GB-WATSON-2016-07357

PATIENT
  Age: 77 Year
  Sex: Male

DRUGS (1)
  1. DOXYCYCLINE (UNKNOWN) [Suspect]
     Active Substance: DOXYCYCLINE
     Indication: PRODUCT USED FOR UNKNOWN INDICATION
     Dosage: 100 MG, UNKNOWN
     Route: 065

REACTIONS (6)
  - Somnolence [Unknown]
  - Intracranial pressure increased [Unknown]
  - Headache [Unknown]
  - Musculoskeletal stiffness [Unknown]
  - Asthenia [Unknown]
  - Confusional state [Unknown]
